FAERS Safety Report 20158077 (Version 4)
Quarter: 2022Q1

REPORT INFORMATION
  Report Type: Spontaneous
  Country: US (occurrence: US)
  Receive Date: 20211207
  Receipt Date: 20220128
  Transmission Date: 20220423
  Serious: Yes (Other)
  Sender: FDA-Public Use
  Company Number: US-SA-SAC20211202000190

PATIENT
  Age: 88 Year
  Sex: Female

DRUGS (3)
  1. DUPIXENT [Suspect]
     Active Substance: DUPILUMAB
     Indication: Dermatitis atopic
     Dosage: 600 MG, 1X (LOADING DOSE)
     Route: 058
     Dates: start: 202008, end: 20200815
  2. DUPIXENT [Suspect]
     Active Substance: DUPILUMAB
     Dosage: 300 MG, QOW (MAINTENANCE DOSE)
     Route: 058
  3. DUPIXENT [Suspect]
     Active Substance: DUPILUMAB
     Dosage: 300 MG, Q15D
     Route: 058

REACTIONS (7)
  - Deafness [Unknown]
  - Eczema [Unknown]
  - Pruritus [Unknown]
  - Vision blurred [Unknown]
  - Skin swelling [Unknown]
  - Urticaria [Unknown]
  - Product use issue [Unknown]

NARRATIVE: CASE EVENT DATE: 20200101
